FAERS Safety Report 9625567 (Version 1)
Quarter: 2013Q4

REPORT INFORMATION
  Report Type: Spontaneous
  Country: US (occurrence: None)
  Receive Date: 20131015
  Receipt Date: 20131015
  Transmission Date: 20140711
  Serious: No
  Sender: FDA-Public Use
  Company Number: None

PATIENT
  Age: 40 Year
  Sex: Male

DRUGS (1)
  1. TRAZODONE [Suspect]
     Indication: MIDDLE INSOMNIA

REACTIONS (3)
  - Poisoning [None]
  - Dizziness [None]
  - No therapeutic response [None]
